FAERS Safety Report 9614045 (Version 1)
Quarter: 2013Q4

REPORT INFORMATION
  Report Type: Spontaneous
  Country: US (occurrence: US)
  Receive Date: 20131011
  Receipt Date: 20131011
  Transmission Date: 20140711
  Serious: No
  Sender: FDA-Public Use
  Company Number: US-ASTRAZENECA-2013SE72621

PATIENT
  Age: 60 Year
  Sex: Female
  Weight: 60.8 kg

DRUGS (4)
  1. CRESTOR [Suspect]
     Indication: BLOOD CHOLESTEROL INCREASED
     Route: 048
  2. CRESTOR [Suspect]
     Indication: BLOOD CHOLESTEROL INCREASED
     Route: 048
  3. TRICOR [Concomitant]
     Indication: BLOOD TRIGLYCERIDES ABNORMAL
     Dosage: UNKNOWN MG DAILY
  4. LOVAZA [Concomitant]
     Indication: CORONARY ARTERY DISEASE
     Dosage: UNKNOWN MG QID

REACTIONS (4)
  - Coronary artery disease [Not Recovered/Not Resolved]
  - Memory impairment [Unknown]
  - Blood cholesterol increased [Unknown]
  - Drug dose omission [Not Recovered/Not Resolved]
